FAERS Safety Report 12137560 (Version 1)
Quarter: 2016Q1

REPORT INFORMATION
  Report Type: Spontaneous
  Country: IT (occurrence: IT)
  Receive Date: 20160302
  Receipt Date: 20160302
  Transmission Date: 20160526
  Serious: Yes (Hospitalization, Other)
  Sender: FDA-Public Use
  Company Number: IT-JNJFOC-20160224688

PATIENT
  Age: 32 Year
  Sex: Male

DRUGS (1)
  1. PALIPERIDONE [Suspect]
     Active Substance: PALIPERIDONE
     Indication: PRODUCT USED FOR UNKNOWN INDICATION
     Route: 048

REACTIONS (7)
  - Hypotension [Unknown]
  - Partial seizures [Recovered/Resolved]
  - Dystonia [Recovered/Resolved]
  - Intentional overdose [Unknown]
  - Atrioventricular block first degree [Unknown]
  - Electrocardiogram QT prolonged [Unknown]
  - Arrhythmia [Unknown]
